FAERS Safety Report 12894559 (Version 1)
Quarter: 2016Q4

REPORT INFORMATION
  Report Type: Spontaneous
  Country: CH (occurrence: CH)
  Receive Date: 20161028
  Receipt Date: 20161028
  Transmission Date: 20170207
  Serious: Yes (Other)
  Sender: FDA-Public Use
  Company Number: CH-JNJFOC-20161012808

PATIENT

DRUGS (1)
  1. INFLIXIMAB, RECOMBINANT [Suspect]
     Active Substance: INFLIXIMAB
     Indication: INFLAMMATORY BOWEL DISEASE
     Route: 042

REACTIONS (26)
  - Tooth abscess [Unknown]
  - Skin disorder [Unknown]
  - Hypoaesthesia [Unknown]
  - Pruritus [Unknown]
  - Herpes zoster [Unknown]
  - Rash [Unknown]
  - Systemic lupus erythematosus [Unknown]
  - Hypersensitivity vasculitis [Recovering/Resolving]
  - Eczema nummular [Unknown]
  - Paraesthesia [Unknown]
  - Hypotension [Unknown]
  - Pustular psoriasis [Unknown]
  - Dermatophytosis [Unknown]
  - Serum sickness [Unknown]
  - Drug intolerance [Unknown]
  - Anxiety [Unknown]
  - Gastrointestinal stenosis [Unknown]
  - Chest discomfort [Unknown]
  - Impetigo [Unknown]
  - Abscess [Unknown]
  - Xerosis [Unknown]
  - Folliculitis [Unknown]
  - Treatment failure [Unknown]
  - Urticaria [Unknown]
  - Dyspareunia [Unknown]
  - Opportunistic infection [Unknown]
